FAERS Safety Report 4333513-1 (Version None)
Quarter: 2004Q2

REPORT INFORMATION
  Report Type: 
  Country: None (occurrence: None)
  Receive Date: 20040401
  Receipt Date: 20040317
  Transmission Date: 20050107
  Serious: Yes (Hospitalization)
  Sender: FDA-Public Use
  Company Number: 191743

PATIENT
  Age: 56 Year
  Sex: Female

DRUGS (7)
  1. AVONEX [Suspect]
     Indication: MULTIPLE SCLEROSIS
     Dosage: 30 MCG QW IM
     Route: 030
     Dates: start: 19990601, end: 20030801
  2. AVONEX [Suspect]
     Indication: MULTIPLE SCLEROSIS
     Dosage: 30 MCG QW IM
     Route: 030
     Dates: start: 20030825, end: 20040312
  3. PERCOCET [Concomitant]
  4. XALATAN [Concomitant]
  5. VALIUM [Concomitant]
  6. ALPRAZOLAM [Concomitant]
  7. OXYCODONE [Concomitant]

REACTIONS (5)
  - ANXIETY [None]
  - CACHEXIA [None]
  - HAEMOPTYSIS [None]
  - NON-SMALL CELL LUNG CANCER [None]
  - PNEUMONIA [None]
